FAERS Safety Report 26036251 (Version 2)
Quarter: 2025Q4

REPORT INFORMATION
  Report Type: Spontaneous
  Country: US (occurrence: US)
  Receive Date: 20251112
  Receipt Date: 20251221
  Transmission Date: 20260118
  Serious: Yes (Hospitalization, Other)
  Sender: CIPLA
  Company Number: US-CIPLA LTD.-2025US14053

PATIENT

DRUGS (9)
  1. HYDROCORTISONE [Suspect]
     Active Substance: HYDROCORTISONE
     Indication: Hypopituitarism
     Dosage: 6 DOSAGE FORM, QD,HROUGH THE CANNULA USED FOR SUBCUTANEOUS INFUSION,  3X / DAY ( 6 PILLS/ DAY)
     Route: 058
     Dates: start: 20250909
  2. HYDROCORTISONE [Suspect]
     Active Substance: HYDROCORTISONE
     Indication: Adrenal insufficiency
  3. GENOTROPIN [Concomitant]
     Active Substance: SOMATROPIN
     Indication: Hypopituitarism
     Dosage: 0.3 MILLIGRAM, EVERYDAY
     Route: 065
  4. ASPIRIN [Concomitant]
     Active Substance: ASPIRIN
     Indication: Product used for unknown indication
     Dosage: 81 MILLIGRAM,EVERYDAY
     Route: 065
  5. LOSARTAN [Concomitant]
     Active Substance: LOSARTAN
     Indication: Product used for unknown indication
     Dosage: 25 MILLIGRAM, EVERYDAY
     Route: 065
  6. ADDERALL [Concomitant]
     Active Substance: AMPHETAMINE ASPARTATE\AMPHETAMINE SULFATE\DEXTROAMPHETAMINE SACCHARATE\DEXTROAMPHETAMINE SULFATE
     Indication: Product used for unknown indication
     Dosage: 20 MILLIGRAM, EVERYDAY
     Route: 065
  7. FUROSEMIDE [Concomitant]
     Active Substance: FUROSEMIDE
     Indication: Cardiac disorder
     Dosage: 20 MILLIGRAM, EVERYDAY
     Route: 065
  8. CHOLECALCIFEROL [Concomitant]
     Active Substance: CHOLECALCIFEROL
     Indication: Product used for unknown indication
     Dosage: UNK, EVERYDAY
     Route: 065
  9. VITAMINS NOS [Concomitant]
     Active Substance: VITAMINS
     Indication: Product used for unknown indication
     Dosage: UNK, EVERYDAY
     Route: 065

REACTIONS (9)
  - Adverse event [Unknown]
  - Malaise [Unknown]
  - Pruritus [Not Recovered/Not Resolved]
  - Histamine intolerance [Unknown]
  - Off label use [Unknown]
  - Contusion [Unknown]
  - Urticaria [Not Recovered/Not Resolved]
  - Rash [Recovering/Resolving]
  - Weight increased [Unknown]

NARRATIVE: CASE EVENT DATE: 20250101
